FAERS Safety Report 6025838-9 (Version None)
Quarter: 2008Q4

REPORT INFORMATION
  Report Type: 
  Country: None (occurrence: None)
  Receive Date: 20081229
  Receipt Date: 20081216
  Transmission Date: 20090506
  Serious: No
  Sender: FDA-Public Use
  Company Number: DSU-2008-02221

PATIENT
  Age: 86 Year
  Sex: Female
  Weight: 69.8539 kg

DRUGS (5)
  1. WELCHOL [Suspect]
     Indication: HYPERLIPIDAEMIA
     Dosage: 3750 MG (1875 MG, BID), PER ORAL
     Route: 048
     Dates: start: 20081213
  2. PREVACID (LANSOPRAZOLE) (CAPSULE) (LANSOPRAZOLE) [Concomitant]
  3. SYNTHROID [Concomitant]
  4. UNSPECIFIED BLOOD PRESSURE MEDICATIONS (ANTIHYPERTENSIVES) [Concomitant]
  5. CENTRUM SILVER (ASCORBIC ACID, TOCOPHERYL ACETATE, RETINOL, ZINC, CALC [Concomitant]

REACTIONS (5)
  - ARTHRITIS [None]
  - DYSPHAGIA [None]
  - FLATULENCE [None]
  - FOREIGN BODY TRAUMA [None]
  - JOINT DISLOCATION [None]
